FAERS Safety Report 7153294-6 (Version None)
Quarter: 2010Q4

REPORT INFORMATION
  Report Type: 
  Country: None (occurrence: None)
  Receive Date: 20101213
  Receipt Date: 20101206
  Transmission Date: 20110411
  Serious: Yes (Death, Other)
  Sender: FDA-Public Use
  Company Number: ES-ROCHE-746502

PATIENT

DRUGS (4)
  1. CEFTRIAXONE SODIUM [Suspect]
     Route: 065
  2. CARVEDILOL [Suspect]
     Route: 065
  3. GLYBURIDE [Suspect]
     Route: 065
  4. DIAZEPAM [Suspect]
     Route: 065

REACTIONS (7)
  - DEATH [None]
  - DIARRHOEA [None]
  - HYPERCAPNIC ENCEPHALOPATHY [None]
  - HYPOGLYCAEMIA [None]
  - HYPOTENSION [None]
  - PANCYTOPENIA [None]
  - RASH [None]
